FAERS Safety Report 9637941 (Version 1)
Quarter: 2013Q4

REPORT INFORMATION
  Report Type: Report from Study
  Country: CA (occurrence: CA)
  Receive Date: 20131022
  Receipt Date: 20131022
  Transmission Date: 20140711
  Serious: Yes (Hospitalization, Other)
  Sender: FDA-Public Use
  Company Number: CA-JNJFOC-20131006969

PATIENT
  Age: 29 Year
  Sex: Female
  Weight: 112 kg

DRUGS (12)
  1. REMICADE [Suspect]
     Indication: CROHN^S DISEASE
     Dosage: 51ST INFUSION
     Route: 042
     Dates: start: 20130903
  2. REMICADE [Suspect]
     Indication: CROHN^S DISEASE
     Route: 042
     Dates: start: 20070629
  3. EFFEXOR [Concomitant]
     Route: 065
  4. TYLENOL 3 [Concomitant]
     Route: 065
  5. FLOVENT [Concomitant]
     Route: 065
  6. MULTIVITAMINS [Concomitant]
     Route: 065
  7. LORAZEPAM [Concomitant]
     Route: 065
  8. SALBUTAMOL [Concomitant]
     Route: 065
  9. PARIET [Concomitant]
     Route: 065
  10. CANNABIS [Concomitant]
     Indication: STRESS
     Route: 065
  11. CANNABIS [Concomitant]
     Indication: SLEEP DISORDER THERAPY
     Route: 065
  12. GRAVOL [Concomitant]
     Route: 065

REACTIONS (6)
  - Influenza like illness [Recovering/Resolving]
  - Malaise [Not Recovered/Not Resolved]
  - Diarrhoea [Not Recovered/Not Resolved]
  - Vomiting [Not Recovered/Not Resolved]
  - Tremor [Not Recovered/Not Resolved]
  - Dizziness [Not Recovered/Not Resolved]
